FAERS Safety Report 7742757-8 (Version None)
Quarter: 2011Q3

REPORT INFORMATION
  Report Type: 
  Country: None (occurrence: None)
  Receive Date: 20110902
  Receipt Date: 20110822
  Transmission Date: 20111222
  Serious: Yes (Death, Hospitalization)
  Sender: FDA-Public Use
  Company Number: KR-JNJFOC-201110207551

PATIENT
  Age: 65 Year
  Sex: Male
  Weight: 68 kg

DRUGS (30)
  1. DECITABINE [Suspect]
     Indication: MYELODYSPLASTIC SYNDROME
     Dosage: 20 MG/M2, 1 IN 1 DAY, INTRAVENOUS
     Route: 042
     Dates: start: 20110516, end: 20110520
  2. DECITABINE [Suspect]
     Indication: MYELODYSPLASTIC SYNDROME
     Dosage: 20 MG/M2, 1 IN 1 DAY, INTRAVENOUS
     Route: 042
     Dates: start: 20110201, end: 20110205
  3. DECITABINE [Suspect]
     Indication: MYELODYSPLASTIC SYNDROME
     Dosage: 20 MG/M2, 1 IN 1 DAY, INTRAVENOUS
     Route: 042
     Dates: start: 20110314, end: 20110318
  4. DECITABINE [Suspect]
     Indication: MYELODYSPLASTIC SYNDROME
     Dosage: 20 MG/M2, 1 IN 1 DAY, INTRAVENOUS
     Route: 042
     Dates: start: 20110717, end: 20110722
  5. ANTIDIABETIC (DRUG USED IN DIABETES) [Concomitant]
  6. DOPAMINE HCL [Concomitant]
  7. TABOBACTAM (TABOBACTAM) [Concomitant]
  8. FUROSEMIDE [Concomitant]
  9. DICODE SR (DIHYDROCODEINE) TABLET [Concomitant]
  10. OLOPATADINE HYDROCHLORIDE [Concomitant]
  11. SPORANOX 9ITRACONAZOLED) SOLUTION [Concomitant]
  12. RAMIPRIL [Concomitant]
  13. CIPRO [Concomitant]
  14. DAPSONE [Concomitant]
  15. LIPITOR [Concomitant]
  16. NEBILET (NEBIVOLOL) [Concomitant]
  17. UNKNOW MEDICATION (ALL OTHER THERAPEUTIC PRODUCTS) [Concomitant]
  18. LASIX [Concomitant]
  19. CIPROBAY (CIPROFLOXACIN HYDROCHLORIDE)  (CIPROFLOXACIN HYDROCHLORIDE) [Concomitant]
  20. ZOVIRAX [Concomitant]
  21. RABEPRAZOLE SODIUM [Concomitant]
  22. ASPIRIN [Concomitant]
  23. CEFTRIAXONE [Interacting]
  24. ALMAGATE (ALMAGATE ) [Concomitant]
  25. TRANEXAMIC ACID (TRANEXAMIC ACID ) [Concomitant]
  26. DOBUTAMINE HCL [Concomitant]
  27. METHYLON (METHYLPREDNISOLONE) [Concomitant]
  28. PROTON PUMP INHIBITOR (PROTON PUMP INHIBITOR) [Concomitant]
  29. JURNISTA (OROS HYDROMORPHONE HCL) [Concomitant]
  30. ULTRACET [Concomitant]

REACTIONS (16)
  - STRESS [None]
  - HYPOGLYCAEMIA [None]
  - FEBRILE NEUTROPENIA [None]
  - AZOTAEMIA [None]
  - COLONIC POLYP [None]
  - BLOOD GLUCOSE DECREASED [None]
  - EJECTION FRACTION DECREASED [None]
  - CARDIOMYOPATHY [None]
  - DISEASE PROGRESSION [None]
  - CARDIAC FAILURE [None]
  - MYALGIA [None]
  - ACUTE MYELOID LEUKAEMIA [None]
  - DIARRHOEA [None]
  - HYPOPHAGIA [None]
  - DYSPNOEA [None]
  - MYOCARDIAL INFARCTION [None]
